FAERS Safety Report 21630049 (Version 3)
Quarter: 2023Q1

REPORT INFORMATION
  Report Type: Report from Study
  Country: US (occurrence: None)
  Receive Date: 20221122
  Receipt Date: 20230119
  Transmission Date: 20230418
  Serious: Yes (Death, Hospitalization)
  Sender: FDA-Public Use
  Company Number: US-Eisai Medical Research-EC-2022-128474

PATIENT
  Age: 57 Year
  Sex: Female

DRUGS (9)
  1. LENVATINIB [Suspect]
     Active Substance: LENVATINIB
     Indication: Cervix carcinoma
     Dosage: 20 MG, DAILY FOR 21 DAYS
     Route: 048
     Dates: start: 20221007, end: 20221115
  2. PEMBROLIZUMAB [Suspect]
     Active Substance: PEMBROLIZUMAB
     Indication: Cervix carcinoma
     Dosage: DAY 1 OF EACH 3 WEEK CYCLE
     Route: 042
     Dates: start: 20221007, end: 20221026
  3. PEMBROLIZUMAB [Suspect]
     Active Substance: PEMBROLIZUMAB
     Dosage: DAY 1 OF EACH 3 WEEK CYCLE
     Route: 042
     Dates: end: 20221207
  4. LOMOTIL [Concomitant]
     Active Substance: ATROPINE SULFATE\DIPHENOXYLATE HYDROCHLORIDE
     Dosage: UNKNOWN
  5. DECADRON [Concomitant]
     Active Substance: DEXAMETHASONE
     Dosage: UNKNOWN
  6. ALPHA ASHWAGANDA [Concomitant]
     Dosage: UNKNOWN
  7. .ALPHA.-TOCOPHEROL [Concomitant]
     Active Substance: .ALPHA.-TOCOPHEROL
     Dosage: UNKNOWN
  8. VITAMIN A [Concomitant]
     Active Substance: VITAMIN A
     Dosage: UNKNOWN
  9. VITAMIN C [Concomitant]
     Active Substance: ASCORBIC ACID
     Dosage: UNKNOWN

REACTIONS (3)
  - Dehydration [Unknown]
  - Sepsis [Not Recovered/Not Resolved]
  - Death [Fatal]

NARRATIVE: CASE EVENT DATE: 20221116
